FAERS Safety Report 10050250 (Version 1)
Quarter: 2014Q2

REPORT INFORMATION
  Report Type: Spontaneous
  Country: IT (occurrence: IT)
  Receive Date: 20140401
  Receipt Date: 20140401
  Transmission Date: 20141212
  Serious: Yes (Other)
  Sender: FDA-Public Use
  Company Number: PHHY2014IT036079

PATIENT
  Age: 62 Year
  Sex: Female

DRUGS (4)
  1. KETOPROFEN [Suspect]
     Indication: BACK PAIN
     Dosage: 80 MG, ONCE/SINGLE
     Route: 048
     Dates: start: 20140304, end: 20140304
  2. CARDIOASPIRIN [Concomitant]
  3. TORVAST [Concomitant]
  4. RAMIPRIL [Concomitant]

REACTIONS (6)
  - Presyncope [Recovered/Resolved]
  - Dizziness [Recovered/Resolved]
  - Paraesthesia [Recovered/Resolved]
  - Vomiting [Recovered/Resolved]
  - Skin burning sensation [Recovered/Resolved]
  - Pruritus [Recovered/Resolved]
